FAERS Safety Report 8734903 (Version 2)
Quarter: 2012Q4

REPORT INFORMATION
  Report Type: 
  Country: US (occurrence: US)
  Receive Date: 20120821
  Receipt Date: 20121010
  Transmission Date: 20130627
  Serious: No
  Sender: FDA-Public Use
  Company Number: US-ASTRAZENECA-2012SE57034

PATIENT
  Age: 81 Year
  Sex: Male
  Weight: 98.2 kg

DRUGS (20)
  1. PRILOSEC [Suspect]
     Indication: GASTROOESOPHAGEAL REFLUX DISEASE
     Route: 048
     Dates: start: 2002
  2. PRILOSEC [Suspect]
     Indication: GASTROOESOPHAGEAL REFLUX DISEASE
     Route: 048
     Dates: start: 20110607, end: 20120911
  3. CRESTOR [Suspect]
     Indication: HYPERCHOLESTEROLAEMIA
     Route: 048
     Dates: start: 20100616
  4. LEVOXYAL [Concomitant]
     Indication: THYROID DISORDER
  5. ENALAPRIL [Concomitant]
  6. AMLODIPINE [Concomitant]
  7. POTASSIUM CHLORIDE [Concomitant]
  8. BABY ASPIRIN [Concomitant]
  9. CARVEDILOL [Concomitant]
  10. CLONIDINE [Concomitant]
  11. HYDROCODONE [Concomitant]
     Indication: ARTHRITIS
  12. MULTIVITAMIN [Concomitant]
  13. VITAMIN D [Concomitant]
  14. CALCIUM [Concomitant]
  15. FLEXAMIN [Concomitant]
  16. GLUCOSAMINE [Concomitant]
  17. BUCIMEX [Concomitant]
  18. FIBER [Concomitant]
  19. CITRIX MD [Concomitant]
  20. MULTIPLE [Concomitant]

REACTIONS (9)
  - Dyspnoea exertional [Unknown]
  - Hyperchlorhydria [Unknown]
  - Dyspepsia [Unknown]
  - Night sweats [Not Recovered/Not Resolved]
  - Apathy [Not Recovered/Not Resolved]
  - Fatigue [Unknown]
  - Nausea [Unknown]
  - Lethargy [Not Recovered/Not Resolved]
  - Drug dose omission [Unknown]
